FAERS Safety Report 19877105 (Version 9)
Quarter: 2021Q4

REPORT INFORMATION
  Report Type: Spontaneous
  Country: US (occurrence: US)
  Receive Date: 20210923
  Receipt Date: 20211028
  Transmission Date: 20220303
  Serious: No
  Sender: FDA-Public Use
  Company Number: US-ALKERMES INC.-ALK-2021-004913

PATIENT
  Sex: Female

DRUGS (2)
  1. VIVITROL [Suspect]
     Active Substance: NALTREXONE
     Indication: Alcoholism
     Dosage: DOSE NOT RECEIVED
     Route: 030
     Dates: start: 20210920, end: 20210920
  2. VIVITROL [Suspect]
     Active Substance: NALTREXONE
     Dosage: 380 MILLIGRAM, QMO
     Route: 030

REACTIONS (4)
  - Product colour issue [Recovered/Resolved]
  - Product physical issue [Recovered/Resolved]
  - Product dose omission issue [Unknown]
  - Alcoholism [Unknown]

NARRATIVE: CASE EVENT DATE: 20210920
